FAERS Safety Report 5447852-4 (Version None)
Quarter: 2007Q3

REPORT INFORMATION
  Report Type: 
  Country: None (occurrence: None)
  Receive Date: 20070910
  Receipt Date: 20070829
  Transmission Date: 20080115
  Serious: Yes (Hospitalization, Other)
  Sender: FDA-Public Use
  Company Number: US-PFIZER INC-2007073074

PATIENT
  Sex: Male
  Weight: 76.818 kg

DRUGS (13)
  1. LIPITOR [Suspect]
     Indication: BLOOD CHOLESTEROL INCREASED
  2. RAPAMUNE [Concomitant]
  3. CELLCEPT [Concomitant]
  4. CYMBALTA [Concomitant]
  5. COREG [Concomitant]
  6. AMITRIPTYLINE HCL [Concomitant]
  7. KEPPRA [Concomitant]
  8. LASIX [Concomitant]
  9. POTASSIUM CHLORIDE [Concomitant]
  10. INSULIN [Concomitant]
  11. NOVOLOG [Concomitant]
  12. NEURONTIN [Concomitant]
  13. ZOLOFT [Concomitant]

REACTIONS (5)
  - ABASIA [None]
  - BLOOD BILIRUBIN INCREASED [None]
  - BLOOD CREATININE INCREASED [None]
  - FALL [None]
  - MUSCLE DISORDER [None]
